FAERS Safety Report 14105939 (Version 1)
Quarter: 2017Q4

REPORT INFORMATION
  Report Type: Spontaneous
  Country: US (occurrence: US)
  Receive Date: 20171018
  Receipt Date: 20171018
  Transmission Date: 20180321
  Serious: No
  Sender: FDA-Public Use
  Company Number: US-PRESTIGE BRANDS -2030572

PATIENT
  Sex: Female

DRUGS (1)
  1. MONISTAT 7 COMBINATION PACK TRIPLE ACTION [Suspect]
     Active Substance: MICONAZOLE NITRATE
     Indication: VULVOVAGINAL MYCOTIC INFECTION
     Route: 067
     Dates: start: 20170615, end: 20170620

REACTIONS (5)
  - Nausea [Unknown]
  - Fatigue [Unknown]
  - Acne [Unknown]
  - Furuncle [Unknown]
  - Nervousness [Unknown]

NARRATIVE: CASE EVENT DATE: 20170618
